FAERS Safety Report 15083438 (Version 4)
Quarter: 2018Q3

REPORT INFORMATION
  Report Type: Spontaneous
  Country: CH (occurrence: CH)
  Receive Date: 20180628
  Receipt Date: 20180806
  Transmission Date: 20181010
  Serious: Yes (Hospitalization, Other)
  Sender: FDA-Public Use
  Company Number: CH-AMGEN-CHESP2018087232

PATIENT
  Sex: Female

DRUGS (1)
  1. IMLYGIC [Suspect]
     Active Substance: TALIMOGENE LAHERPAREPVEC
     Indication: SKIN LESION
     Dosage: UNK
     Route: 065

REACTIONS (2)
  - Dermo-hypodermitis [Recovered/Resolved]
  - Off label use [Unknown]
